FAERS Safety Report 6255187-5 (Version None)
Quarter: 2009Q3

REPORT INFORMATION
  Report Type: 
  Country: None (occurrence: None)
  Receive Date: 20090702
  Receipt Date: 20090622
  Transmission Date: 20100115
  Serious: Yes (Hospitalization)
  Sender: FDA-Public Use
  Company Number: US-PFIZER INC-2009230369

PATIENT
  Sex: Male

DRUGS (2)
  1. GEODON [Suspect]
     Dosage: UNK
     Dates: start: 20090501, end: 20090501
  2. ARICEPT [Suspect]
     Indication: DEMENTIA ALZHEIMER'S TYPE
     Dosage: 10 MG, UNK
     Dates: start: 20090215, end: 20090414

REACTIONS (4)
  - NERVOUSNESS [None]
  - PROSTATITIS [None]
  - TREMOR [None]
  - URINARY TRACT INFECTION [None]
